FAERS Safety Report 23399751 (Version 1)
Quarter: 2024Q1

REPORT INFORMATION
  Report Type: Spontaneous
  Country: US (occurrence: US)
  Receive Date: 20240114
  Receipt Date: 20240114
  Transmission Date: 20240409
  Serious: No
  Sender: FDA-Public Use
  Company Number: US-JNJFOC-20231274548

PATIENT
  Age: 63 Year

DRUGS (1)
  1. TREMFYA [Suspect]
     Active Substance: GUSELKUMAB
     Indication: Product used for unknown indication
     Route: 065
     Dates: start: 20231006

REACTIONS (3)
  - Manufacturing stability testing issue [Unknown]
  - Drug ineffective [Unknown]
  - Arthralgia [Unknown]
